FAERS Safety Report 8933143 (Version 1)
Quarter: 2012Q4

REPORT INFORMATION
  Report Type: 
  Country: US (occurrence: US)
  Receive Date: 20121129
  Receipt Date: 20121129
  Transmission Date: 20130627
  Serious: No
  Sender: FDA-Public Use
  Company Number: US-BIOGENIDEC-2012BI055405

PATIENT
  Sex: Male

DRUGS (1)
  1. TYSABRI [Suspect]
     Indication: MULTIPLE SCLEROSIS
     Route: 042
     Dates: start: 20080810

REACTIONS (11)
  - Balance disorder [Unknown]
  - Frustration [Unknown]
  - Cerebrovascular disorder [Unknown]
  - Knee operation [Unknown]
  - Gait disturbance [Unknown]
  - Hypoaesthesia [Unknown]
  - Amnesia [Unknown]
  - Temperature intolerance [Unknown]
  - Back injury [Unknown]
  - Hypertension [Unknown]
  - Multiple sclerosis [Unknown]
